FAERS Safety Report 16661959 (Version 1)
Quarter: 2019Q3

REPORT INFORMATION
  Report Type: Report from Study
  Country: US (occurrence: US)
  Receive Date: 20190802
  Receipt Date: 20190802
  Transmission Date: 20191004
  Serious: No
  Sender: FDA-Public Use
  Company Number: US-EXELIXIS-CABO-19018080

PATIENT
  Sex: Male

DRUGS (8)
  1. VITAMIN B12 [Concomitant]
     Active Substance: CYANOCOBALAMIN
  2. FISH OIL [Concomitant]
     Active Substance: FISH OIL
  3. CABOMETYX [Suspect]
     Active Substance: CABOZANTINIB S-MALATE
     Indication: RENAL CANCER
     Dosage: 40 MG, QD
     Route: 048
     Dates: start: 20181228
  4. ALLOPURINOL. [Concomitant]
     Active Substance: ALLOPURINOL
  5. DOXAZOSIN MESYLATE. [Concomitant]
     Active Substance: DOXAZOSIN MESYLATE
  6. ATORVASTATIN [Concomitant]
     Active Substance: ATORVASTATIN
  7. GLIPIZIDE. [Concomitant]
     Active Substance: GLIPIZIDE
  8. VITAMIN D [Concomitant]
     Active Substance: VITAMIN D NOS

REACTIONS (1)
  - Myalgia [Not Recovered/Not Resolved]
